FAERS Safety Report 4530540-6 (Version None)
Quarter: 2004Q4

REPORT INFORMATION
  Report Type: 
  Country: None (occurrence: None)
  Receive Date: 20041216
  Receipt Date: 20041130
  Transmission Date: 20050328
  Serious: Yes (Hospitalization)
  Sender: FDA-Public Use
  Company Number: EWC041241623

PATIENT
  Age: 56 Year
  Sex: Female
  Weight: 52 kg

DRUGS (5)
  1. GEMZAR [Suspect]
     Indication: NON-SMALL CELL LUNG CANCER
     Dosage: 1000 MG/M2
     Dates: start: 20041112
  2. CELECOXIB [Concomitant]
  3. MAGNESIUM OXIDE [Concomitant]
  4. DOMPERIDONE [Concomitant]
  5. DEXAMETHASONE [Concomitant]

REACTIONS (2)
  - PYREXIA [None]
  - STEVENS-JOHNSON SYNDROME [None]
